FAERS Safety Report 5481204-6 (Version None)
Quarter: 2007Q4

REPORT INFORMATION
  Report Type: 
  Country: None (occurrence: None)
  Receive Date: 20071010
  Receipt Date: 20071002
  Transmission Date: 20080405
  Serious: Yes (Hospitalization)
  Sender: FDA-Public Use
  Company Number: PHBS2007BR16596

PATIENT
  Age: 52 Year
  Sex: Male
  Weight: 78 kg

DRUGS (6)
  1. CODATEN [Suspect]
     Indication: BONE PAIN
     Dosage: UNK, BID
     Route: 048
     Dates: end: 20071002
  2. CYPROTERONE ACETATE [Concomitant]
     Indication: NEOPLASM MALIGNANT
     Dosage: UNK, BID
     Route: 048
  3. PROPRANOLOL [Concomitant]
     Dosage: 40 MG, QD
     Route: 048
  4. CAPTOPRIL [Concomitant]
     Indication: HYPERTENSION
     Dosage: 25 MG, TID
     Route: 048
  5. COMBIRON B 12 [Concomitant]
     Indication: ANAEMIA
     Dosage: UNK, QD
     Route: 048
  6. METFORMIN HCL [Concomitant]
     Indication: DIABETES MELLITUS
     Dosage: 850 MG, QD
     Route: 048

REACTIONS (5)
  - AGEUSIA [None]
  - ANAEMIA [None]
  - BLINDNESS [None]
  - HYPOACUSIS [None]
  - VISION BLURRED [None]
